FAERS Safety Report 13378040 (Version 1)
Quarter: 2017Q1

REPORT INFORMATION
  Report Type: Spontaneous
  Country: US (occurrence: US)
  Receive Date: 20170328
  Receipt Date: 20170328
  Transmission Date: 20170429
  Serious: Yes (Hospitalization, Other)
  Sender: FDA-Public Use
  Company Number: US-PFIZER INC-2017127993

PATIENT
  Age: 70 Year
  Sex: Male
  Weight: 90.26 kg

DRUGS (1)
  1. ZYVOX [Suspect]
     Active Substance: LINEZOLID
     Indication: STAPHYLOCOCCAL INFECTION
     Dosage: UNK
     Dates: start: 201612, end: 20170103

REACTIONS (6)
  - Skin discolouration [Unknown]
  - Streptococcal infection [Unknown]
  - Limb injury [Unknown]
  - Staphylococcal infection [Unknown]
  - Vascular injury [Unknown]
  - Enterobacter infection [Unknown]

NARRATIVE: CASE EVENT DATE: 20170103
